FAERS Safety Report 13168020 (Version 1)
Quarter: 2017Q1

REPORT INFORMATION
  Report Type: Spontaneous
  Country: US (occurrence: US)
  Receive Date: 20170131
  Receipt Date: 20170131
  Transmission Date: 20170428
  Serious: Yes (Other)
  Sender: FDA-Public Use
  Company Number: US-STI PHARMA LLC-1062569

PATIENT
  Age: 76 Year
  Sex: Female
  Weight: 54.55 kg

DRUGS (1)
  1. ETHAMBUTOL HYDROCHLORIDE. [Suspect]
     Active Substance: ETHAMBUTOL HYDROCHLORIDE

REACTIONS (4)
  - Colour blindness acquired [Unknown]
  - Visual acuity reduced [Recovering/Resolving]
  - Optic nerve injury [None]
  - Neuropathy peripheral [None]

NARRATIVE: CASE EVENT DATE: 20100716
